FAERS Safety Report 14199825 (Version 1)
Quarter: 2017Q4

REPORT INFORMATION
  Report Type: Spontaneous
  Country: US (occurrence: US)
  Receive Date: 20171117
  Receipt Date: 20171117
  Transmission Date: 20180321
  Serious: No
  Sender: FDA-Public Use
  Company Number: US-BAUSCH-BL-2017-023895

PATIENT
  Sex: Male
  Weight: 108.51 kg

DRUGS (2)
  1. DELZICOL [Concomitant]
     Active Substance: MESALAMINE
     Indication: CROHN^S DISEASE
     Dosage: STARTED ABOUT 10 YEARS PRIOR
     Route: 048
     Dates: start: 2007
  2. XIFAXAN [Suspect]
     Active Substance: RIFAXIMIN
     Indication: CROHN^S DISEASE
     Dosage: STARTED ABOUT 10 YEARS PRIOR
     Route: 048

REACTIONS (4)
  - Treatment noncompliance [Unknown]
  - No adverse event [Unknown]
  - Off label use [Unknown]
  - Drug prescribing error [Unknown]

NARRATIVE: CASE EVENT DATE: 2007
